FAERS Safety Report 7206663-X (Version None)
Quarter: 2011Q1

REPORT INFORMATION
  Report Type: 
  Country: None (occurrence: None)
  Receive Date: 20110103
  Receipt Date: 20101223
  Transmission Date: 20110831
  Serious: Yes (Other)
  Sender: FDA-Public Use
  Company Number: GB-JNJFOC-20101208320

PATIENT
  Age: 30 Year
  Sex: Female

DRUGS (2)
  1. INFLIXIMAB, RECOMBINANT [Suspect]
     Indication: PRODUCT USED FOR UNKNOWN INDICATION
     Route: 042
  2. INFLIXIMAB, RECOMBINANT [Suspect]
     Route: 042

REACTIONS (5)
  - INFUSION RELATED REACTION [None]
  - HYPERTENSION [None]
  - FLUSHING [None]
  - DRUG EXPOSURE DURING PREGNANCY [None]
  - CHEST DISCOMFORT [None]
